FAERS Safety Report 22172158 (Version 2)
Quarter: 2023Q2

REPORT INFORMATION
  Report Type: Spontaneous
  Country: BR (occurrence: BR)
  Receive Date: 20230404
  Receipt Date: 20230418
  Transmission Date: 20230721
  Serious: Yes (Life-Threatening, Other)
  Sender: FDA-Public Use
  Company Number: BR-BoehringerIngelheim-2023-BI-229266

PATIENT
  Age: 67 Year
  Sex: Male
  Weight: 109 kg

DRUGS (3)
  1. PRADAXA [Suspect]
     Active Substance: DABIGATRAN ETEXILATE MESYLATE
     Indication: Ischaemic stroke
     Route: 048
     Dates: start: 201905
  2. PRADAXA [Suspect]
     Active Substance: DABIGATRAN ETEXILATE MESYLATE
     Indication: Deep vein thrombosis
  3. NICARDIPINA [Concomitant]
     Indication: Hypertension
     Route: 048

REACTIONS (18)
  - Factor VIII deficiency [Not Recovered/Not Resolved]
  - Gastric haemorrhage [Unknown]
  - Haematuria [Unknown]
  - Gait inability [Unknown]
  - Peripheral swelling [Unknown]
  - Abdominal distension [Unknown]
  - Diabetes mellitus [Unknown]
  - Haemorrhage [Unknown]
  - Disability [Unknown]
  - Red blood cell count decreased [Unknown]
  - Haematemesis [Unknown]
  - Fatigue [Unknown]
  - Fatigue [Unknown]
  - Pallor [Unknown]
  - Condition aggravated [Unknown]
  - White blood cell disorder [Unknown]
  - Red blood cell count decreased [Unknown]
  - Impaired quality of life [Unknown]

NARRATIVE: CASE EVENT DATE: 20210101
